FAERS Safety Report 20050946 (Version 4)
Quarter: 2021Q4

REPORT INFORMATION
  Report Type: Report from Study
  Country: CA (occurrence: CA)
  Receive Date: 20211110
  Receipt Date: 20211201
  Transmission Date: 20220303
  Serious: Yes (Other)
  Sender: FDA-Public Use
  Company Number: CA-JNJFOC-20211113686

PATIENT
  Age: 17 Year
  Sex: Female
  Weight: 61.290 kg

DRUGS (2)
  1. REMICADE [Suspect]
     Active Substance: INFLIXIMAB
     Indication: Colitis ulcerative
     Dosage: ON 04-NOV-2021, THE PATIENT RECEIVED 29TH INFLIXIMAB INFUSION AT DOSE OF 400 MG AND PARTIAL MAYO WAS
     Route: 042
     Dates: start: 20170914
  2. REMICADE [Suspect]
     Active Substance: INFLIXIMAB
     Dosage: 11.43 MG/KG?LAST DOSE WAS ON 25-NOV-2021
     Route: 042

REACTIONS (7)
  - Haematochezia [Unknown]
  - Frequent bowel movements [Unknown]
  - General physical health deterioration [Unknown]
  - Fatigue [Unknown]
  - Incorrect drug administration rate [Unknown]
  - Off label use [Unknown]
  - Incorrect dose administered [Unknown]

NARRATIVE: CASE EVENT DATE: 20210101
